FAERS Safety Report 5363698-X (Version None)
Quarter: 2007Q2

REPORT INFORMATION
  Report Type: 
  Country: None (occurrence: None)
  Receive Date: 20070620
  Receipt Date: 20070615
  Transmission Date: 20071010
  Serious: Yes (Death)
  Sender: FDA-Public Use
  Company Number: US-ROCHE-483988

PATIENT
  Age: 29 Year
  Sex: Female
  Weight: 130.6 kg

DRUGS (6)
  1. ROCEPHIN [Suspect]
     Route: 042
     Dates: start: 20060605, end: 20060605
  2. OPTIRAY 320 [Suspect]
     Route: 042
     Dates: start: 20060605, end: 20060605
  3. LEVAQUIN [Suspect]
     Route: 042
     Dates: start: 20060605, end: 20060605
  4. DEMEROL [Concomitant]
     Indication: PAIN
     Dosage: REPORTED AS 25-50 MG EVERY 4 HOURS AS NEEDED.
     Route: 042
     Dates: start: 20060605, end: 20060605
  5. PHENERGAN HCL [Concomitant]
     Indication: VOMITING
     Dosage: REPORTED AS 25 MG EVERY 4 HOURS AS NEEDED.
     Route: 042
     Dates: start: 20060605, end: 20060605
  6. SODIUM CHLORIDE [Concomitant]
     Dosage: REPORTED AS 125 CC/HR
     Dates: start: 20060605, end: 20060605

REACTIONS (2)
  - ANAPHYLACTIC REACTION [None]
  - CARDIOPULMONARY FAILURE [None]
